FAERS Safety Report 18049036 (Version 1)
Quarter: 2020Q3

REPORT INFORMATION
  Report Type: Spontaneous
  Country: US (occurrence: US)
  Receive Date: 20200721
  Receipt Date: 20200721
  Transmission Date: 20201103
  Serious: No
  Sender: FDA-Public Use
  Company Number: US-MYLANLABS-2020M1064168

PATIENT
  Sex: Female
  Weight: 82 kg

DRUGS (1)
  1. ESTRADIOL TRANSDERMAL SYSTEM [Suspect]
     Active Substance: ESTRADIOL
     Indication: HOT FLUSH
     Dosage: 0.25 MILLIGRAM, QW (ONCE WEEK)
     Route: 062
     Dates: start: 20200618

REACTIONS (5)
  - Nausea [Unknown]
  - Application site erythema [Unknown]
  - Application site irritation [Unknown]
  - Off label use [Unknown]
  - Product adhesion issue [Unknown]
